FAERS Safety Report 4596292-9 (Version None)
Quarter: 2005Q1

REPORT INFORMATION
  Report Type: 
  Country: None (occurrence: None)
  Receive Date: 20050228
  Receipt Date: 20050214
  Transmission Date: 20050727
  Serious: Yes (Other)
  Sender: FDA-Public Use
  Company Number: 2005024896

PATIENT
  Age: 66 Year
  Sex: Female

DRUGS (3)
  1. RHINOPRONT KOMBI (PSEUDOEPHEDRINE, TRIPROLIDINE) [Suspect]
     Indication: FEELING COLD
     Dosage: ORAL
     Route: 048
     Dates: start: 20050115, end: 20050116
  2. CODIPRONT/OLD FORM/(CODEINE, PHENYLTOLOXAMINE) [Concomitant]
  3. AMBROXOL HYDROCHLORIDE(AMBROXOL HYDROCHLORIDE) [Concomitant]

REACTIONS (1)
  - RASH MACULO-PAPULAR [None]
